FAERS Safety Report 8200182-X (Version None)
Quarter: 2012Q1

REPORT INFORMATION
  Report Type: 
  Country: None (occurrence: None)
  Receive Date: 20120309
  Receipt Date: 20120309
  Transmission Date: 20120608
  Serious: Yes (Other)
  Sender: FDA-Public Use
  Company Number: None

PATIENT
  Sex: Female

DRUGS (1)
  1. SUTENT [Suspect]
     Indication: CARCINOID TUMOUR
     Dosage: 25MG ONCE DAILY BY MOUTH
     Route: 048
     Dates: start: 20111209, end: 20120215

REACTIONS (3)
  - DIARRHOEA [None]
  - FATIGUE [None]
  - RASH [None]
